FAERS Safety Report 18474554 (Version 2)
Quarter: 2022Q1

REPORT INFORMATION
  Report Type: Report from Study
  Country: US (occurrence: US)
  Receive Date: 20201106
  Receipt Date: 20220322
  Transmission Date: 20220423
  Serious: Yes (Hospitalization, Other)
  Sender: FDA-Public Use
  Company Number: US-BRISTOL-MYERS SQUIBB COMPANY-BMS-2020-091969

PATIENT
  Age: 75 Year
  Sex: Female
  Weight: 122.47 kg

DRUGS (2)
  1. APIXABAN [Suspect]
     Active Substance: APIXABAN
     Indication: Cerebrovascular accident prophylaxis
     Dosage: 5 MILLIGRAM, BID
     Route: 048
     Dates: start: 202001
  2. APIXABAN [Suspect]
     Active Substance: APIXABAN
     Indication: Cardiac failure

REACTIONS (4)
  - Cardiac failure [Unknown]
  - Tooth disorder [Unknown]
  - Weight increased [Unknown]
  - Toothache [Unknown]

NARRATIVE: CASE EVENT DATE: 20201001
